FAERS Safety Report 24668960 (Version 1)
Quarter: 2024Q4

REPORT INFORMATION
  Report Type: Spontaneous
  Country: US (occurrence: US)
  Receive Date: 20241127
  Receipt Date: 20241127
  Transmission Date: 20250114
  Serious: No
  Sender: BRISTOL-MYERS SQUIBB COMPANY
  Company Number: US-BRISTOL-MYERS SQUIBB COMPANY-2024-184591

PATIENT
  Age: 38 Year
  Sex: Male

DRUGS (8)
  1. ZEPOSIA [Suspect]
     Active Substance: OZANIMOD HYDROCHLORIDE
     Indication: Colitis ulcerative
     Dosage: FOR 4 DAYS
     Route: 048
     Dates: start: 202411
  2. ZEPOSIA [Suspect]
     Active Substance: OZANIMOD HYDROCHLORIDE
     Dosage: FOR 3 DAYS
     Route: 048
  3. ZEPOSIA [Suspect]
     Active Substance: OZANIMOD HYDROCHLORIDE
     Route: 048
  4. DUPIXENT [Concomitant]
     Active Substance: DUPILUMAB
     Indication: Nasal polyps
     Dosage: PEN (2-PK
  5. DUPIXENT [Concomitant]
     Active Substance: DUPILUMAB
     Indication: Asthma
  6. DUPIXENT [Concomitant]
     Active Substance: DUPILUMAB
     Indication: Nasal turbinate hypertrophy
  7. DUPIXENT [Concomitant]
     Active Substance: DUPILUMAB
     Indication: Sinus disorder
  8. DUPIXENT [Concomitant]
     Active Substance: DUPILUMAB
     Indication: Chronic sinusitis

REACTIONS (1)
  - Colitis ulcerative [Unknown]
